FAERS Safety Report 14549327 (Version 1)
Quarter: 2018Q1

REPORT INFORMATION
  Report Type: Spontaneous
  Country: IN (occurrence: IN)
  Receive Date: 20180219
  Receipt Date: 20180219
  Transmission Date: 20180509
  Serious: Yes (Other)
  Sender: FDA-Public Use
  Company Number: IN-ACCORD-063360

PATIENT
  Age: 15 Year
  Sex: Male

DRUGS (2)
  1. AMITRIPTYLINE [Suspect]
     Active Substance: AMITRIPTYLINE
     Indication: MIGRAINE
     Dosage: STARTED ON A DAILY NIGHT TIME?DOSE OF 10 MG
  2. TOPIRAMATE. [Suspect]
     Active Substance: TOPIRAMATE
     Indication: MIGRAINE

REACTIONS (1)
  - Sensory disturbance [Recovered/Resolved]
